FAERS Safety Report 5333716-3 (Version None)
Quarter: 2007Q2

REPORT INFORMATION
  Report Type: 
  Country: None (occurrence: None)
  Receive Date: 20070524
  Receipt Date: 20070523
  Transmission Date: 20071010
  Serious: Yes (Other)
  Sender: FDA-Public Use
  Company Number: B0471939A

PATIENT
  Age: 35 Year
  Sex: Female

DRUGS (3)
  1. ALBUTEROL [Suspect]
     Indication: DRUG USE FOR UNKNOWN INDICATION
     Route: 055
  2. FLUTICASONE PROPIONATE [Concomitant]
     Route: 055
  3. ZADITEN [Concomitant]
     Route: 065

REACTIONS (1)
  - CONVULSION [None]
